FAERS Safety Report 9353313 (Version 6)
Quarter: 2014Q3

REPORT INFORMATION
  Report Type: Spontaneous
  Country: AR (occurrence: AR)
  Receive Date: 20130618
  Receipt Date: 20140808
  Transmission Date: 20150326
  Serious: Yes (Hospitalization, Other)
  Sender: FDA-Public Use
  Company Number: AR-PFIZER INC-2013178094

PATIENT
  Age: 65 Year
  Sex: Female

DRUGS (3)
  1. SUTENT [Suspect]
     Active Substance: SUNITINIB MALATE
     Dosage: 50 MG, 4/2 SCHEME
     Dates: start: 20130514
  2. SUTENT [Suspect]
     Active Substance: SUNITINIB MALATE
     Dosage: 37.5 MG, 4/2 SCHEME
  3. SUTENT [Suspect]
     Active Substance: SUNITINIB MALATE
     Dosage: 25 MG, 1/1 SCHEME

REACTIONS (12)
  - Drug-induced liver injury [Recovered/Resolved]
  - Vomiting [Not Recovered/Not Resolved]
  - Platelet count decreased [Recovered/Resolved]
  - Haemorrhage [Recovering/Resolving]
  - White blood cell disorder [Not Recovered/Not Resolved]
  - Enzyme abnormality [Recovering/Resolving]
  - Haematoma [Recovering/Resolving]
  - Hypertension [Recovering/Resolving]
  - Blood urine present [Recovering/Resolving]
  - Rectal haemorrhage [Recovering/Resolving]
  - Red blood cell abnormality [Unknown]
  - Diarrhoea [Recovering/Resolving]

NARRATIVE: CASE EVENT DATE: 201305
